FAERS Safety Report 7716108-9 (Version None)
Quarter: 2011Q3

REPORT INFORMATION
  Report Type: 
  Country: None (occurrence: None)
  Receive Date: 20110829
  Receipt Date: 20110819
  Transmission Date: 20111222
  Serious: Yes (Other)
  Sender: FDA-Public Use
  Company Number: CO-GLAXOSMITHKLINE-A0942558A

PATIENT
  Sex: Male
  Weight: 77 kg

DRUGS (2)
  1. BUPROPION HCL [Concomitant]
     Indication: DEPRESSION
     Dosage: 300MG PER DAY
     Route: 065
  2. LAMICTAL [Suspect]
     Indication: MOOD SWINGS
     Dosage: 200MG PER DAY
     Route: 048
     Dates: start: 20110201

REACTIONS (3)
  - PURPURA [None]
  - CAPILLARITIS [None]
  - HYPERSENSITIVITY [None]
